FAERS Safety Report 5733764-5 (Version None)
Quarter: 2008Q2

REPORT INFORMATION
  Report Type: 
  Country: None (occurrence: None)
  Receive Date: 20080509
  Receipt Date: 20080430
  Transmission Date: 20081010
  Serious: Yes (Death)
  Sender: FDA-Public Use
  Company Number: JP-PFIZER INC-2008022248

PATIENT
  Sex: Female
  Weight: 40 kg

DRUGS (12)
  1. ZYVOX [Suspect]
     Indication: STAPHYLOCOCCAL OSTEOMYELITIS
     Dosage: DAILY DOSE:1200MG
     Route: 042
     Dates: start: 20080219, end: 20080228
  2. ZYVOX [Suspect]
     Indication: MENINGITIS STAPHYLOCOCCAL
  3. ZYVOX [Suspect]
     Indication: STAPHYLOCOCCAL OSTEOMYELITIS
     Dosage: DAILY DOSE:1200MG
     Route: 048
     Dates: start: 20080229, end: 20080304
  4. ZYVOX [Suspect]
     Indication: MENINGITIS STAPHYLOCOCCAL
  5. VFEND [Suspect]
     Indication: MENINGITIS CRYPTOCOCCAL
     Route: 042
     Dates: start: 20080220, end: 20080228
  6. PRODIF [Suspect]
     Indication: MENINGITIS CRYPTOCOCCAL
     Dosage: DAILY DOSE:504.5MG
     Route: 042
     Dates: start: 20080229, end: 20080304
  7. ISCOTIN [Suspect]
     Indication: MENINGITIS TUBERCULOUS
     Dosage: DAILY DOSE:400MG
     Route: 048
     Dates: start: 20080220, end: 20080304
  8. RIFADIN [Suspect]
     Indication: MENINGITIS TUBERCULOUS
     Dosage: DAILY DOSE:450MG
     Route: 048
     Dates: start: 20080220, end: 20080304
  9. EBUTOL [Suspect]
     Indication: MENINGITIS TUBERCULOUS
     Dosage: DAILY DOSE:750MG
     Route: 048
     Dates: start: 20080220, end: 20080304
  10. PYRAMIDE [Suspect]
     Indication: MENINGITIS TUBERCULOUS
     Dosage: DAILY DOSE:1GRAM
     Route: 048
     Dates: start: 20080220, end: 20080304
  11. ANCOTIL [Suspect]
     Indication: MENINGITIS CRYPTOCOCCAL
     Route: 048
     Dates: start: 20080229, end: 20080304
  12. FAMOTIDINE [Concomitant]
     Route: 048

REACTIONS (1)
  - HEPATIC FAILURE [None]
